FAERS Safety Report 5099130-3 (Version None)
Quarter: 2006Q3

REPORT INFORMATION
  Report Type: 
  Country: None (occurrence: None)
  Receive Date: 20060731
  Receipt Date: 20051123
  Transmission Date: 20061208
  Serious: Yes (Other)
  Sender: FDA-Public Use
  Company Number: 219785

PATIENT
  Age: 43 Year
  Sex: Female

DRUGS (1)
  1. HERCEPTIN [Suspect]
     Indication: BREAST CANCER
     Dosage: 2 MG/K/W, 1/WEEK
     Dates: start: 20050715

REACTIONS (1)
  - BREAST CANCER RECURRENT [None]
